FAERS Safety Report 7655448-9 (Version None)
Quarter: 2011Q3

REPORT INFORMATION
  Report Type: 
  Country: None (occurrence: None)
  Receive Date: 20110729
  Receipt Date: 20110718
  Transmission Date: 20111222
  Serious: Yes (Hospitalization)
  Sender: FDA-Public Use
  Company Number: PYR-11-22

PATIENT
  Age: 41 Year
  Sex: Male

DRUGS (4)
  1. ETHAMBUTOL HYDROCHLORIDE [Concomitant]
  2. PYRAZINAMIDE [Suspect]
     Indication: PULMONARY TUBERCULOSIS
  3. RIFAMPICIN [Concomitant]
  4. ISONIAZID [Concomitant]

REACTIONS (8)
  - ANAEMIA [None]
  - PYREXIA [None]
  - SKIN LESION [None]
  - ORAL CANDIDIASIS [None]
  - DEHYDRATION [None]
  - HYPONATRAEMIA [None]
  - GENERAL PHYSICAL HEALTH DETERIORATION [None]
  - SKIN EXFOLIATION [None]
